FAERS Safety Report 8187358-5 (Version None)
Quarter: 2012Q1

REPORT INFORMATION
  Report Type: 
  Country: None (occurrence: None)
  Receive Date: 20120302
  Receipt Date: 20120224
  Transmission Date: 20120608
  Serious: Yes (Death, Hospitalization)
  Sender: FDA-Public Use
  Company Number: DAV-AE-MTX-12-10

PATIENT
  Age: 14 Year
  Sex: Male

DRUGS (2)
  1. METHOTREXATE [Suspect]
     Indication: ACUTE LYMPHOCYTIC LEUKAEMIA
  2. PREDNISONE TAB [Concomitant]

REACTIONS (17)
  - HEPATIC FAILURE [None]
  - DRUG CLEARANCE DECREASED [None]
  - BONE MARROW FAILURE [None]
  - ENCEPHALOPATHY [None]
  - HEPATORENAL SYNDROME [None]
  - BRONCHOPULMONARY ASPERGILLOSIS [None]
  - SEPSIS [None]
  - NEUTROPENIC COLITIS [None]
  - RESPIRATORY FAILURE [None]
  - LEFT VENTRICULAR DYSFUNCTION [None]
  - HYPOTENSION [None]
  - HEPATIC CIRRHOSIS [None]
  - GENERAL PHYSICAL HEALTH DETERIORATION [None]
  - RENAL FAILURE [None]
  - IRON OVERLOAD [None]
  - TOXICITY TO VARIOUS AGENTS [None]
  - PNEUMONIA [None]
